FAERS Safety Report 9375106 (Version 3)
Quarter: 2014Q2

REPORT INFORMATION
  Report Type: Report from Study
  Country: JP (occurrence: JP)
  Receive Date: 20130628
  Receipt Date: 20140626
  Transmission Date: 20141212
  Serious: Yes (Other)
  Sender: FDA-Public Use
  Company Number: JP-ASTRAZENECA-2013SE48659

PATIENT
  Age: 24233 Day
  Sex: Male

DRUGS (34)
  1. AZD6140 [Suspect]
     Indication: CORONARY ARTERY DISEASE
     Route: 048
     Dates: start: 20120308, end: 20130307
  2. TAKEPRON [Suspect]
     Indication: PROPHYLAXIS
     Route: 048
  3. LIPITOR [Suspect]
     Indication: HYPERLIPIDAEMIA
     Route: 048
     Dates: end: 20130926
  4. PREDONINE [Suspect]
     Indication: ECZEMA
     Route: 048
     Dates: start: 20130214
  5. PREDONINE [Suspect]
     Indication: ECZEMA
     Route: 048
     Dates: start: 20130214
  6. JANUVIA [Suspect]
     Indication: TYPE 2 DIABETES MELLITUS
     Route: 048
  7. RINDERON-VG [Concomitant]
     Indication: ECZEMA
     Route: 050
     Dates: start: 20120628
  8. AMLODIPINE BESILATE [Concomitant]
     Indication: HYPERTENSION
     Route: 048
  9. GENTACIN [Concomitant]
     Indication: PARONYCHIA
     Route: 050
     Dates: start: 20121230
  10. GENTACIN [Concomitant]
     Indication: ECZEMA
     Route: 050
     Dates: start: 20121230
  11. GATIFLO [Concomitant]
     Indication: EYE DISCHARGE
     Route: 050
     Dates: start: 20120628, end: 20120831
  12. GATIFLO [Concomitant]
     Indication: EYE DISCHARGE
     Route: 050
     Dates: start: 20121108, end: 20121231
  13. GATIFLO [Concomitant]
     Indication: EYE DISCHARGE
     Route: 050
     Dates: start: 20130204
  14. HYALEIN [Concomitant]
     Indication: EYE DISCHARGE
     Route: 050
     Dates: start: 20130204
  15. ARTIST [Concomitant]
     Indication: HYPERTENSION
     Route: 048
  16. ANTEBATE [Concomitant]
     Indication: ECZEMA
     Route: 050
     Dates: start: 20120628
  17. MYSER [Concomitant]
     Indication: ECZEMA
     Route: 050
     Dates: start: 20120628
  18. GLUCOBAY [Concomitant]
     Indication: TYPE 2 DIABETES MELLITUS
     Route: 048
  19. NEXIUM [Concomitant]
     Indication: PROPHYLAXIS
     Route: 048
     Dates: start: 20130607
  20. MICARDIS [Concomitant]
     Indication: HYPERTENSION
     Route: 048
  21. AMARYL [Concomitant]
     Indication: TYPE 2 DIABETES MELLITUS
     Route: 048
  22. NERISONA [Concomitant]
     Indication: ECZEMA
     Route: 050
     Dates: start: 20121227, end: 20130131
  23. NERISONA [Concomitant]
     Indication: ECZEMA
     Route: 050
     Dates: start: 20121227, end: 20130131
  24. NERISONA [Concomitant]
     Indication: ECZEMA
     Route: 050
     Dates: start: 20130214
  25. NERISONA [Concomitant]
     Indication: ECZEMA
     Route: 050
     Dates: start: 20130214
  26. ALLEGRA [Concomitant]
     Indication: ECZEMA
     Route: 048
     Dates: start: 20120706, end: 20121218
  27. ALLEGRA [Concomitant]
     Indication: ECZEMA
     Route: 048
     Dates: start: 20120706, end: 20121218
  28. ALLEGRA [Concomitant]
     Indication: ECZEMA
     Route: 048
     Dates: start: 20121227, end: 20130120
  29. ALLEGRA [Concomitant]
     Indication: ECZEMA
     Route: 048
     Dates: start: 20121227, end: 20130120
  30. ALLEGRA [Concomitant]
     Indication: ECZEMA
     Route: 048
     Dates: start: 20130214, end: 20131017
  31. ALLEGRA [Concomitant]
     Indication: ECZEMA
     Route: 048
     Dates: start: 20130214, end: 20131017
  32. ALESION [Concomitant]
     Indication: ECZEMA
     Route: 048
     Dates: start: 20130307
  33. ALESION [Concomitant]
     Indication: ECZEMA
     Route: 048
     Dates: start: 20130307
  34. ASA [Concomitant]
     Route: 048

REACTIONS (1)
  - Lymphoma cutis [Not Recovered/Not Resolved]
